FAERS Safety Report 13273200 (Version 1)
Quarter: 2017Q1

REPORT INFORMATION
  Report Type: Spontaneous
  Country: FR (occurrence: FR)
  Receive Date: 20170227
  Receipt Date: 20170227
  Transmission Date: 20170428
  Serious: Yes (Life-Threatening, Hospitalization)
  Sender: FDA-Public Use
  Company Number: FR-SA-2017SA031691

PATIENT
  Age: 93 Year
  Sex: Female

DRUGS (5)
  1. PLAVIX [Suspect]
     Active Substance: CLOPIDOGREL BISULFATE
     Indication: STENT PLACEMENT
     Route: 048
     Dates: end: 20161231
  2. COUMADINE [Suspect]
     Active Substance: WARFARIN SODIUM
     Dosage: 1 TABLET AND A HALF PER DAY
     Route: 048
  3. COUMADINE [Suspect]
     Active Substance: WARFARIN SODIUM
     Dosage: 1 TABLET AND A HALF PER DAY
     Route: 048
  4. KARDEGIC [Suspect]
     Active Substance: ASPIRIN LYSINE
     Indication: STENT PLACEMENT
     Dosage: POWDER FOR ORAL SOLUTION IN DOSE-SACHET
     Route: 048
  5. KARDEGIC [Suspect]
     Active Substance: ASPIRIN LYSINE
     Indication: STENT PLACEMENT
     Dosage: POWDER FOR ORAL SOLUTION IN DOSE-SACHET
     Route: 048

REACTIONS (2)
  - Rectal haemorrhage [Recovered/Resolved]
  - International normalised ratio increased [Recovered/Resolved]

NARRATIVE: CASE EVENT DATE: 20161231
